FAERS Safety Report 8059680-4 (Version None)
Quarter: 2012Q1

REPORT INFORMATION
  Report Type: 
  Country: None (occurrence: None)
  Receive Date: 20120120
  Receipt Date: 20120111
  Transmission Date: 20120608
  Serious: Yes (Other)
  Sender: FDA-Public Use
  Company Number: PHHY2010CA16430

PATIENT
  Sex: Male

DRUGS (5)
  1. SANDOSTATIN [Suspect]
     Dosage: 100 UG, TID
     Route: 058
     Dates: start: 20100301
  2. SANDOSTATIN [Suspect]
     Indication: NEUROENDOCRINE TUMOUR
     Dates: end: 20080101
  3. MORPHINE [Concomitant]
     Indication: PAIN
  4. SANDOSTATIN LAR [Suspect]
     Indication: NEUROENDOCRINE TUMOUR
     Dosage: 30 MG, QMO
     Route: 030
     Dates: start: 20100313
  5. SANDOSTATIN LAR [Suspect]
     Dosage: 30 MG EVERY 4 WEEKS
     Route: 030

REACTIONS (24)
  - FLUSHING [None]
  - ABNORMAL FAECES [None]
  - LACRIMATION INCREASED [None]
  - ABDOMINAL PAIN LOWER [None]
  - PAIN IN EXTREMITY [None]
  - SKIN PLAQUE [None]
  - PRURITUS [None]
  - VOMITING [None]
  - VISION BLURRED [None]
  - DEPRESSED MOOD [None]
  - GASTROINTESTINAL NEOPLASM [None]
  - DECREASED APPETITE [None]
  - ABDOMINAL PAIN [None]
  - FAECAL VOLUME INCREASED [None]
  - NAUSEA [None]
  - DIARRHOEA [None]
  - HOT FLUSH [None]
  - NEOPLASM MALIGNANT [None]
  - ABDOMINAL MASS [None]
  - VISUAL IMPAIRMENT [None]
  - METASTASES TO LIVER [None]
  - DYSPHONIA [None]
  - ARTHRALGIA [None]
  - FATIGUE [None]
